FAERS Safety Report 12918530 (Version 1)
Quarter: 2016Q4

REPORT INFORMATION
  Report Type: Report from Study
  Country: FR (occurrence: FR)
  Receive Date: 20161107
  Receipt Date: 20161107
  Transmission Date: 20170207
  Serious: Yes (Death, Other)
  Sender: FDA-Public Use
  Company Number: FR-ROCHE-1851126

PATIENT

DRUGS (10)
  1. DACLATASVIR. [Suspect]
     Active Substance: DACLATASVIR
     Indication: HIV INFECTION
     Route: 048
  2. SIMEPREVIR [Suspect]
     Active Substance: SIMEPREVIR
     Indication: HIV INFECTION
     Route: 048
  3. SOFOSBUVIR [Suspect]
     Active Substance: SOFOSBUVIR
     Indication: HEPATITIS C
     Route: 048
  4. SIMEPREVIR [Suspect]
     Active Substance: SIMEPREVIR
     Indication: HEPATITIS C
  5. RIBAVIRIN. [Suspect]
     Active Substance: RIBAVIRIN
     Indication: HIV INFECTION
  6. DACLATASVIR. [Suspect]
     Active Substance: DACLATASVIR
     Indication: HEPATITIS C
  7. LEDIPASVIR [Suspect]
     Active Substance: LEDIPASVIR
     Indication: HEPATITIS C
     Route: 048
  8. LEDIPASVIR [Suspect]
     Active Substance: LEDIPASVIR
     Indication: HIV INFECTION
  9. RIBAVIRIN. [Suspect]
     Active Substance: RIBAVIRIN
     Indication: HEPATITIS C
     Route: 048
  10. SOFOSBUVIR [Suspect]
     Active Substance: SOFOSBUVIR
     Indication: HIV INFECTION

REACTIONS (22)
  - Treatment failure [Unknown]
  - Renal failure [Unknown]
  - Gynaecomastia [Unknown]
  - Bronchitis [Unknown]
  - Hepatocellular carcinoma [Unknown]
  - Drug intolerance [Unknown]
  - Insomnia [Unknown]
  - Arthralgia [Unknown]
  - Mucosal inflammation [Unknown]
  - Lipohypertrophy [Unknown]
  - Candida infection [Unknown]
  - Gastrointestinal disorder [Unknown]
  - Headache [Unknown]
  - Cough [Unknown]
  - Asthenia [Unknown]
  - Myalgia [Unknown]
  - Fatigue [Unknown]
  - Skin disorder [Unknown]
  - Affective disorder [Unknown]
  - Death [Fatal]
  - Hepatic failure [Unknown]
  - Anaemia [Unknown]
